FAERS Safety Report 23621019 (Version 4)
Quarter: 2024Q2

REPORT INFORMATION
  Report Type: Spontaneous
  Country: CA (occurrence: CA)
  Receive Date: 20240312
  Receipt Date: 20240508
  Transmission Date: 20240716
  Serious: Yes (Other)
  Sender: FDA-Public Use
  Company Number: CA-CELLTRION INC.-2024CA005812

PATIENT

DRUGS (7)
  1. INFLECTRA [Suspect]
     Active Substance: INFLIXIMAB-DYYB
     Indication: Colitis ulcerative
     Dosage: 5MG/KG, WEEK 0, 2, 6 THEN Q 8WEEKS (WEEK 0)
     Route: 042
     Dates: start: 20201219
  2. INFLECTRA [Suspect]
     Active Substance: INFLIXIMAB-DYYB
     Dosage: 5MG/KG, WEEK 0, 2, 6 THEN Q 8WEEKS (WEEK 2)
     Route: 042
     Dates: start: 20210104
  3. INFLECTRA [Suspect]
     Active Substance: INFLIXIMAB-DYYB
     Dosage: 5MG/KG, WEEK 0, 2, 6 THEN Q 8WEEKS (WEEK 6)
     Route: 042
     Dates: start: 20210215
  4. INFLECTRA [Suspect]
     Active Substance: INFLIXIMAB-DYYB
     Dosage: 5MG/KG, WEEK 0, 2, 6 THEN Q 8WEEKS
     Route: 042
     Dates: start: 20240301
  5. INFLECTRA [Suspect]
     Active Substance: INFLIXIMAB-DYYB
     Dosage: 500 MG (5MG/KG), EVERY 8 WEEKS
     Route: 042
     Dates: start: 20240426
  6. CALCIUM [Concomitant]
     Active Substance: CALCIUM
     Dosage: 1DF, UNKNOWN DOSE, FREQUENCY
  7. CHOLECALCIFEROL [Concomitant]
     Active Substance: CHOLECALCIFEROL
     Dosage: 1DF, UNKNOWN DOSE, FREQUENCY

REACTIONS (2)
  - Umbilical hernia [Recovered/Resolved]
  - Constipation [Recovered/Resolved]

NARRATIVE: CASE EVENT DATE: 20240301
